FAERS Safety Report 4528226-7 (Version None)
Quarter: 2004Q4

REPORT INFORMATION
  Report Type: 
  Country: None (occurrence: None)
  Receive Date: 20041130
  Receipt Date: 20040820
  Transmission Date: 20050328
  Serious: No
  Sender: FDA-Public Use
  Company Number: 702095

PATIENT
  Age: 58 Year
  Sex: Female

DRUGS (6)
  1. AMEVIVE [Suspect]
     Indication: PSORIASIS
     Dosage: 15 MG QW IM
     Route: 030
     Dates: start: 20040601
  2. NORVASC [Concomitant]
  3. WARFIN [Concomitant]
  4. LESCOL ^SANDOZ^ [Concomitant]
  5. HYDROCHLOROTHIAZIDE [Concomitant]
  6. NEORAL [Concomitant]

REACTIONS (1)
  - CD8 LYMPHOCYTES DECREASED [None]
